FAERS Safety Report 5282118-7 (Version None)
Quarter: 2007Q1

REPORT INFORMATION
  Report Type: 
  Country: None (occurrence: None)
  Receive Date: 20070330
  Receipt Date: 20070319
  Transmission Date: 20070707
  Serious: Yes (Other)
  Sender: FDA-Public Use
  Company Number: US-PFIZER INC-2006130434

PATIENT
  Age: 2 Year
  Sex: Male

DRUGS (1)
  1. DIFLUCAN [Suspect]

REACTIONS (2)
  - DEEP VEIN THROMBOSIS [None]
  - EXPIRED DRUG ADMINISTERED [None]
